FAERS Safety Report 11316493 (Version 1)
Quarter: 2015Q3

REPORT INFORMATION
  Report Type: Spontaneous
  Country: US (occurrence: US)
  Receive Date: 20150728
  Receipt Date: 20150728
  Transmission Date: 20151125
  Serious: Yes (Other)
  Sender: FDA-Public Use
  Company Number: US-BEH-2015052730

PATIENT
  Age: 7 Year
  Sex: Female

DRUGS (2)
  1. IVIG [Suspect]
     Active Substance: HUMAN IMMUNOGLOBULIN G
     Indication: KAWASAKI^S DISEASE
     Dosage: TWO DOSES, 1 DAY APART, WITH A CUMULATIVE DOSE OF 2 G/KG
     Route: 042
  2. IVIG [Suspect]
     Active Substance: HUMAN IMMUNOGLOBULIN G
     Indication: VASCULITIS
     Dosage: TWO DOSES, 1 DAY APART, WITH A CUMULATIVE DOSE OF 2 G/KG
     Route: 042

REACTIONS (3)
  - Haemolytic anaemia [Recovered/Resolved]
  - Extravascular haemolysis [Recovered/Resolved]
  - Haemoglobin decreased [Recovered/Resolved]
